FAERS Safety Report 15795911 (Version 1)
Quarter: 2019Q1

REPORT INFORMATION
  Report Type: Spontaneous
  Country: US (occurrence: US)
  Receive Date: 20190107
  Receipt Date: 20190107
  Transmission Date: 20190417
  Serious: No
  Sender: FDA-Public Use
  Company Number: US-MYLANLABS-2018M1092080

PATIENT
  Age: 73 Year
  Sex: Male
  Weight: 92 kg

DRUGS (1)
  1. CLONAZEPAM TABLETS, USP [Suspect]
     Active Substance: CLONAZEPAM
     Indication: POLLAKIURIA
     Dosage: 1 MILLIGRAM, QD
     Route: 065
     Dates: start: 2010

REACTIONS (2)
  - Drug ineffective [Unknown]
  - Off label use [Unknown]
